FAERS Safety Report 9969791 (Version 3)
Quarter: 2014Q3

REPORT INFORMATION
  Report Type: Spontaneous
  Country: IT (occurrence: None)
  Receive Date: 20140304
  Receipt Date: 20140708
  Transmission Date: 20150326
  Serious: Yes (Hospitalization)
  Sender: FDA-Public Use
  Company Number: AUR-APL-2014-01993

PATIENT
  Age: 87 Year
  Sex: Male

DRUGS (10)
  1. AVODART [Concomitant]
     Active Substance: DUTASTERIDE
  2. LESCOL [Concomitant]
     Active Substance: FLUVASTATIN SODIUM
  3. REPAGLINIDE (REPAGLINIDE) [Concomitant]
     Active Substance: REPAGLINIDE
  4. METFORMIN [Concomitant]
     Active Substance: METFORMIN HYDROCHLORIDE
  5. CARDIOASPIRIN (ACETYLSALICYLIC ACID) [Concomitant]
     Active Substance: ASPIRIN
  6. NORVASC [Concomitant]
     Active Substance: AMLODIPINE BESYLATE
  7. ALLOPURINOL (ALLOPURINOL) [Concomitant]
     Active Substance: ALLOPURINOL
  8. CARVEDILOL. [Suspect]
     Active Substance: CARVEDILOL
     Indication: PRODUCT USED FOR UNKNOWN INDICATION
     Route: 048
     Dates: start: 20060101, end: 20140205
  9. TERAPROST (TERAZOSIN HYDROCHLORIDE) [Concomitant]
     Active Substance: TERAZOSIN HYDROCHLORIDE
  10. MODURETIC 5-50 [Suspect]
     Active Substance: AMILORIDE HYDROCHLORIDE\HYDROCHLOROTHIAZIDE
     Indication: PRODUCT USED FOR UNKNOWN INDICATION
     Route: 048
     Dates: start: 20131001, end: 20140205

REACTIONS (2)
  - Hyperkalaemia [None]
  - Sinus bradycardia [None]

NARRATIVE: CASE EVENT DATE: 20140205
